FAERS Safety Report 15681383 (Version 1)
Quarter: 2018Q4

REPORT INFORMATION
  Report Type: Spontaneous
  Country: US (occurrence: US)
  Receive Date: 20181120
  Receipt Date: 20181120
  Transmission Date: 20190205
  Serious: Yes (Hospitalization)
  Sender: FDA-Public Use
  Company Number: None

PATIENT
  Sex: Male

DRUGS (7)
  1. CIMZIA [Suspect]
     Active Substance: CERTOLIZUMAB PEGOL
     Indication: RHEUMATOID ARTHRITIS
     Route: 058
     Dates: start: 20160211
  2. BUPROPN HCL [Concomitant]
     Active Substance: BUPROPION HYDROCHLORIDE
  3. METHYLPRED [Concomitant]
     Active Substance: METHYLPREDNISOLONE
  4. ZALEPLON. [Concomitant]
     Active Substance: ZALEPLON
  5. FOLIC ACID. [Concomitant]
     Active Substance: FOLIC ACID
  6. AZITHROMYCIN ANHYDROUS. [Concomitant]
     Active Substance: AZITHROMYCIN ANHYDROUS
  7. METHOTREXATE. [Concomitant]
     Active Substance: METHOTREXATE

REACTIONS (1)
  - Condition aggravated [None]
